FAERS Safety Report 4636349-7 (Version None)
Quarter: 2005Q2

REPORT INFORMATION
  Report Type: 
  Country: None (occurrence: None)
  Receive Date: 20050415
  Receipt Date: 20041223
  Transmission Date: 20051028
  Serious: No
  Sender: FDA-Public Use
  Company Number: US-BRISTOL-MYERS SQUIBB COMPANY-12806717

PATIENT
  Age: 62 Year
  Sex: Female

DRUGS (7)
  1. CARBOPLATIN [Suspect]
     Indication: OVARIAN CANCER
     Route: 042
  2. CARBOPLATIN [Suspect]
     Indication: METASTASES TO LUNG
     Route: 042
  3. TAXOL [Suspect]
     Indication: OVARIAN CANCER
     Route: 042
  4. TAXOL [Suspect]
     Indication: METASTASES TO LUNG
     Route: 042
  5. DECADRON [Concomitant]
     Route: 042
  6. KYTRIL [Concomitant]
     Route: 042
  7. BENADRYL [Concomitant]
     Route: 042

REACTIONS (3)
  - ANXIETY [None]
  - DYSPNOEA [None]
  - ERYTHEMA [None]
